FAERS Safety Report 13313523 (Version 1)
Quarter: 2017Q1

REPORT INFORMATION
  Report Type: Spontaneous
  Country: PT (occurrence: PT)
  Receive Date: 20170309
  Receipt Date: 20170309
  Transmission Date: 20170428
  Serious: Yes (Death)
  Sender: FDA-Public Use
  Company Number: PT-B.I. PHARMACEUTICALS,INC./RIDGEFIELD-2017-32-000004

PATIENT
  Age: 81 Year
  Sex: Female
  Weight: 80 kg

DRUGS (9)
  1. BISOPROLOL [Concomitant]
     Active Substance: BISOPROLOL
     Dosage: 5MG+2.5MG
     Route: 048
  2. TORASEMIDA [Concomitant]
     Active Substance: TORSEMIDE
     Indication: HYPERTENSION
     Dosage: DOSE: 3
     Route: 048
     Dates: start: 2015, end: 20170218
  3. PANTOPRAZOL [Concomitant]
     Active Substance: PANTOPRAZOLE SODIUM
     Indication: PROPHYLAXIS AGAINST GASTROINTESTINAL ULCER
     Dosage: DOSE: 3
     Route: 048
     Dates: start: 2013, end: 20170218
  4. CARBIDOPA AND LEVODOPA [Concomitant]
     Active Substance: CARBIDOPA\LEVODOPA
     Indication: TREMOR
     Dosage: STRENGTH: 100 + 25 MG ; DOSE:32
     Route: 048
     Dates: start: 2011, end: 20170218
  5. DONEPEZILO [Concomitant]
     Indication: COGNITIVE DISORDER
     Dosage: DOSE:3
     Route: 048
     Dates: start: 2014, end: 20170218
  6. BISOPROLOL [Concomitant]
     Active Substance: BISOPROLOL
     Indication: ATRIAL FIBRILLATION
     Dosage: DOSE: 3
     Route: 048
     Dates: start: 2012, end: 20170218
  7. OLMESARTAN MEDOXOMILO [Concomitant]
     Indication: HYPERTENSION
     Dosage: DOSE: 3
     Route: 048
     Dates: start: 2013, end: 20170218
  8. METFORMIN [Concomitant]
     Active Substance: METFORMIN HYDROCHLORIDE
     Indication: TYPE 2 DIABETES MELLITUS
     Dosage: DOSE: 3
     Route: 048
     Dates: start: 2008, end: 20170218
  9. PRADAXA [Suspect]
     Active Substance: DABIGATRAN ETEXILATE MESYLATE
     Indication: ATRIAL FIBRILLATION
     Dosage: DOSE: 3
     Route: 048
     Dates: start: 2012, end: 20170218

REACTIONS (1)
  - Cerebral haemorrhage [Fatal]

NARRATIVE: CASE EVENT DATE: 20170219
